FAERS Safety Report 12215481 (Version 2)
Quarter: 2016Q2

REPORT INFORMATION
  Report Type: Report from Study
  Country: US (occurrence: US)
  Receive Date: 20160328
  Receipt Date: 20160601
  Transmission Date: 20160815
  Serious: Yes (Other)
  Sender: FDA-Public Use
  Company Number: US-ABBVIE-16K-163-1590584-00

PATIENT
  Age: 51 Year
  Sex: Female
  Weight: 75.82 kg

DRUGS (1)
  1. HUMIRA [Suspect]
     Active Substance: ADALIMUMAB
     Indication: PSORIATIC ARTHROPATHY
     Route: 058
     Dates: start: 20150820, end: 20160211

REACTIONS (1)
  - Pharyngeal mass [Recovered/Resolved]

NARRATIVE: CASE EVENT DATE: 20160303
